FAERS Safety Report 9548554 (Version 1)
Quarter: 2013Q3

REPORT INFORMATION
  Report Type: Spontaneous
  Country: US (occurrence: None)
  Receive Date: 20130701
  Receipt Date: 20130701
  Transmission Date: 20140515
  Serious: No
  Sender: FDA-Public Use
  Company Number: 255606

PATIENT
  Age: 40 Year
  Sex: Female

DRUGS (4)
  1. FENTANYL CITRATE [Suspect]
     Indication: SEDATION
     Route: 042
     Dates: start: 20090424, end: 20090424
  2. VALIUM [Concomitant]
  3. DECADRON  /00016001/ [Concomitant]
  4. KETAMINE [Concomitant]

REACTIONS (2)
  - Apnoea [None]
  - Off label use [None]
